APPROVED DRUG PRODUCT: SCENESSE
Active Ingredient: AFAMELANOTIDE
Strength: 16MG
Dosage Form/Route: IMPLANT;SUBCUTANEOUS
Application: N210797 | Product #001
Applicant: CLINUVEL INC
Approved: Oct 8, 2019 | RLD: Yes | RS: Yes | Type: RX

PATENTS:
Patent 8334265 | Expires: Jan 20, 2033

EXCLUSIVITY:
Code: ODE-270 | Date: Oct 8, 2026